FAERS Safety Report 14510911 (Version 2)
Quarter: 2018Q1

REPORT INFORMATION
  Report Type: Spontaneous
  Country: US (occurrence: US)
  Receive Date: 20180209
  Receipt Date: 20180215
  Transmission Date: 20180509
  Serious: No
  Sender: FDA-Public Use
  Company Number: US-ROCHE-2021824

PATIENT
  Sex: Female
  Weight: 90.8 kg

DRUGS (4)
  1. ADDERALL [Concomitant]
     Active Substance: AMPHETAMINE ASPARTATE\AMPHETAMINE SULFATE\DEXTROAMPHETAMINE SACCHARATE\DEXTROAMPHETAMINE SULFATE
  2. OCREVUS [Suspect]
     Active Substance: OCRELIZUMAB
     Dosage: SUBSEQUENT DOSE OF 600 MG ON EVERY 6 MONTHS
     Route: 042
     Dates: start: 20170901
  3. OCREVUS [Suspect]
     Active Substance: OCRELIZUMAB
     Route: 042
     Dates: start: 201708
  4. OCREVUS [Suspect]
     Active Substance: OCRELIZUMAB
     Indication: MULTIPLE SCLEROSIS
     Route: 042
     Dates: start: 20170818

REACTIONS (17)
  - Condition aggravated [Not Recovered/Not Resolved]
  - Gait disturbance [Unknown]
  - Weight increased [Unknown]
  - Chills [Unknown]
  - Lymphadenopathy [Unknown]
  - Hypoacusis [Unknown]
  - Fatigue [Unknown]
  - Amnesia [Unknown]
  - Dry mouth [Unknown]
  - Cognitive disorder [Unknown]
  - Depression [Unknown]
  - Dysphonia [Unknown]
  - Fungal infection [Unknown]
  - Throat irritation [Unknown]
  - Stress [Unknown]
  - Mouth ulceration [Unknown]
  - Tongue ulceration [Unknown]
